FAERS Safety Report 11342807 (Version 2)
Quarter: 2015Q3

REPORT INFORMATION
  Report Type: Report from Study
  Country: US (occurrence: US)
  Receive Date: 20150805
  Receipt Date: 20150902
  Transmission Date: 20151125
  Serious: Yes (Other)
  Sender: FDA-Public Use
  Company Number: US-TAKEDA-2015MPI004847

PATIENT
  Age: 55 Year
  Sex: Male
  Weight: 97.9 kg

DRUGS (14)
  1. LOTREL [Concomitant]
     Active Substance: AMLODIPINE BESYLATE\BENAZEPRIL HYDROCHLORIDE
     Dosage: UNK
     Route: 048
  2. ROXICODONE [Concomitant]
     Active Substance: OXYCODONE HYDROCHLORIDE
     Dosage: 5 MG, UNK
     Route: 048
  3. POTASSIUM CHLORIDE. [Concomitant]
     Active Substance: POTASSIUM CHLORIDE
     Dosage: 20 MEQ, BID
     Route: 048
  4. DEXAMETHASONE. [Suspect]
     Active Substance: DEXAMETHASONE
     Indication: PLASMA CELL MYELOMA
     Route: 065
  5. LANTUS [Concomitant]
     Active Substance: INSULIN GLARGINE
     Route: 058
  6. VELCADE [Suspect]
     Active Substance: BORTEZOMIB
     Indication: PLASMA CELL MYELOMA
     Dosage: 1.3 MG/M2, UNK
     Route: 065
     Dates: start: 20120508, end: 201301
  7. VELCADE [Suspect]
     Active Substance: BORTEZOMIB
     Dosage: 1 MG/M2, UNK
     Dates: start: 201312
  8. NEURONTIN [Concomitant]
     Active Substance: GABAPENTIN
     Dosage: 300 MG, TID
  9. METFORMIN [Concomitant]
     Active Substance: METFORMIN HYDROCHLORIDE
     Dosage: 500 MG, UNK
  10. LENALIDOMIDE [Suspect]
     Active Substance: LENALIDOMIDE
     Indication: PLASMA CELL MYELOMA
     Dosage: 10 MG, UNK
     Route: 048
     Dates: start: 20120508, end: 20150422
  11. MELPHALAN [Suspect]
     Active Substance: MELPHALAN
     Indication: PLASMA CELL MYELOMA
     Route: 065
  12. ASPIRIN                            /00002701/ [Concomitant]
     Active Substance: ASPIRIN
     Dosage: 81 MG, QD
     Route: 048
  13. MAG-OX [Concomitant]
     Active Substance: MAGNESIUM OXIDE
     Dosage: 400 MG, QD
     Route: 048
  14. PROAIR HFA [Concomitant]
     Active Substance: ALBUTEROL SULFATE

REACTIONS (2)
  - Thrombocytopenia [Unknown]
  - Acute myeloid leukaemia [Unknown]

NARRATIVE: CASE EVENT DATE: 20150715
